FAERS Safety Report 12209653 (Version 11)
Quarter: 2017Q3

REPORT INFORMATION
  Report Type: Report from Study
  Country: CA (occurrence: CA)
  Receive Date: 20160325
  Receipt Date: 20170912
  Transmission Date: 20171127
  Serious: Yes (Other)
  Sender: FDA-Public Use
  Company Number: CA-ROCHE-1213265

PATIENT
  Age: 76 Year
  Sex: Female
  Weight: 65 kg

DRUGS (5)
  1. APO-FOLIC [Concomitant]
     Active Substance: FOLIC ACID
  2. APO-GLYBURIDE [Concomitant]
     Active Substance: GLYBURIDE
  3. CELEBREX [Concomitant]
     Active Substance: CELECOXIB
  4. METFORMIN [Concomitant]
     Active Substance: METFORMIN HYDROCHLORIDE
  5. ACTEMRA [Suspect]
     Active Substance: TOCILIZUMAB
     Indication: RHEUMATOID ARTHRITIS
     Dosage: MOST RECENT DOSE WAS ADMINISTERED ON 08/SEP/2017.
     Route: 042
     Dates: start: 20121113

REACTIONS (16)
  - Arthropathy [Not Recovered/Not Resolved]
  - Influenza [Not Recovered/Not Resolved]
  - Pain [Not Recovered/Not Resolved]
  - Nasopharyngitis [Recovered/Resolved]
  - Tibia fracture [Unknown]
  - Pruritus [Recovered/Resolved]
  - Infusion related reaction [Unknown]
  - Joint swelling [Unknown]
  - Hypertension [Unknown]
  - Blood pressure fluctuation [Unknown]
  - Arthralgia [Unknown]
  - Blood pressure systolic increased [Unknown]
  - Blood pressure increased [Unknown]
  - Eye disorder [Unknown]
  - Arthralgia [Recovering/Resolving]
  - Body temperature increased [Unknown]

NARRATIVE: CASE EVENT DATE: 2013
